FAERS Safety Report 8400321-1 (Version None)
Quarter: 2012Q2

REPORT INFORMATION
  Report Type: 
  Country: None (occurrence: None)
  Receive Date: 20120525
  Receipt Date: 20120514
  Transmission Date: 20120825
  Serious: Yes (Other)
  Sender: FDA-Public Use
  Company Number: AUR-APL-2012-02038

PATIENT
  Age: 62 Year
  Sex: Female
  Weight: 81.18 kg

DRUGS (6)
  1. XANAX [Concomitant]
  2. MEDROL [Suspect]
     Indication: INFLAMMATION
     Dates: start: 20100101, end: 20100101
  3. AMLODIPINE [Suspect]
     Indication: HYPERTENSION
     Dosage: (10 MG,1 D),ORAL ; (10 MG,1 D),ORAL
     Route: 048
     Dates: start: 20100101
  4. AMLODIPINE [Suspect]
     Indication: HYPERTENSION
     Dosage: (10 MG,1 D),ORAL ; (10 MG,1 D),ORAL
     Route: 048
     Dates: start: 20100101, end: 20100101
  5. SIMVASTATIN [Suspect]
     Indication: BLOOD CHOLESTEROL
     Dosage: 5 MG (5 MG, 1 IN 1 D) ; (10 MG,1 D) ; (15 MG,1 D)
     Dates: start: 20100101
  6. LEVAQUIN [Suspect]
     Indication: PRODUCT USED FOR UNKNOWN INDICATION

REACTIONS (14)
  - JOINT SWELLING [None]
  - DIZZINESS [None]
  - FEELING ABNORMAL [None]
  - ARTERIAL DISORDER [None]
  - DRUG HYPERSENSITIVITY [None]
  - PRODUCT SUBSTITUTION ISSUE [None]
  - PALPITATIONS [None]
  - URTICARIA [None]
  - TRANSIENT ISCHAEMIC ATTACK [None]
  - VASCULAR CALCIFICATION [None]
  - DRUG INEFFECTIVE [None]
  - DRUG DISPENSING ERROR [None]
  - VITAMIN D DECREASED [None]
  - BLOOD PRESSURE INCREASED [None]
